FAERS Safety Report 10213270 (Version 1)
Quarter: 2014Q2

REPORT INFORMATION
  Report Type: Spontaneous
  Country: US (occurrence: None)
  Receive Date: 20140529
  Receipt Date: 20140529
  Transmission Date: 20141212
  Serious: Yes (Other)
  Sender: FDA-Public Use
  Company Number: 153161

PATIENT
  Age: 11 Year
  Sex: Female

DRUGS (2)
  1. ADRIAMYCIN [Suspect]
     Indication: ACUTE LYMPHOCYTIC LEUKAEMIA
  2. CYTARABINE [Suspect]
     Indication: ACUTE LYMPHOCYTIC LEUKAEMIA

REACTIONS (7)
  - Cerebral haemangioma [None]
  - Convulsion [None]
  - Headache [None]
  - Speech disorder [None]
  - Hemiparesis [None]
  - Cerebral haemorrhage [None]
  - Brain oedema [None]
